FAERS Safety Report 14849470 (Version 1)
Quarter: 2018Q2

REPORT INFORMATION
  Report Type: Report from Study
  Country: FR (occurrence: FR)
  Receive Date: 20180504
  Receipt Date: 20180504
  Transmission Date: 20180711
  Serious: Yes (Other)
  Sender: FDA-Public Use
  Company Number: FR-CHIESI USA INC.-FR-2018CHI000099

PATIENT
  Age: 0 Day
  Sex: Male
  Weight: 1.61 kg

DRUGS (5)
  1. PARACETAMOL [Concomitant]
     Active Substance: ACETAMINOPHEN
     Indication: PAIN
     Dosage: 32 MG, QD
     Dates: start: 20180322, end: 20180326
  2. GENTAMYCIN                         /00047102/ [Concomitant]
     Indication: COMPLICATION OF PREGNANCY
     Dosage: 8 MG, QD
     Dates: start: 20180322, end: 20180323
  3. VITAMIN K1 [Concomitant]
     Active Substance: PHYTONADIONE
     Indication: PRODUCT USED FOR UNKNOWN INDICATION
     Dosage: 1 MG, QD
     Dates: start: 20180322
  4. CUROSURF [Suspect]
     Active Substance: PORACTANT ALFA
     Indication: PRODUCT USED FOR UNKNOWN INDICATION
     Dosage: UNK, SINGLE
     Route: 007
     Dates: start: 20180322, end: 20180322
  5. CEFOTAXIME [Concomitant]
     Active Substance: CEFOTAXIME SODIUM
     Indication: COMPLICATION OF PREGNANCY
     Dosage: 80 MG, BID
     Dates: start: 20180322, end: 20180324

REACTIONS (1)
  - Infantile apnoea [Recovered/Resolved]

NARRATIVE: CASE EVENT DATE: 20180322
